FAERS Safety Report 18781002 (Version 1)
Quarter: 2021Q1

REPORT INFORMATION
  Report Type: Spontaneous
  Country: US (occurrence: US)
  Receive Date: 20210123
  Receipt Date: 20210123
  Transmission Date: 20210419
  Serious: Yes (Hospitalization)
  Sender: FDA-Public Use
  Company Number: None

PATIENT
  Sex: Male
  Weight: 31.75 kg

DRUGS (4)
  1. ERWINIA ASPARGINASE [Suspect]
     Active Substance: ASPARAGINASE ERWINIA CHRYSANTHEMI
     Dates: end: 20180711
  2. CYTARABINE. [Suspect]
     Active Substance: CYTARABINE
     Dates: end: 20180707
  3. DEXAMETHASONE. [Suspect]
     Active Substance: DEXAMETHASONE
  4. VINCRISTINE [Suspect]
     Active Substance: VINCRISTINE
     Dates: end: 20180627

REACTIONS (3)
  - Thrombocytopenia [None]
  - Anaemia [None]
  - Neutropenia [None]

NARRATIVE: CASE EVENT DATE: 20180705
